FAERS Safety Report 5671631-6 (Version None)
Quarter: 2008Q1

REPORT INFORMATION
  Report Type: 
  Country: None (occurrence: None)
  Receive Date: 20080313
  Receipt Date: 20080229
  Transmission Date: 20080703
  Serious: Yes (Death)
  Sender: FDA-Public Use
  Company Number: 08H-167-0313964-00

PATIENT
  Age: 76 Year
  Sex: Female

DRUGS (6)
  1. PROPOFOL [Suspect]
     Indication: ANAESTHESIA
     Dosage: 50 MG, 1 IN 1 TOTAL,
     Dates: start: 19990210, end: 19990210
  2. MIDAZOLAM HYDROCHLORIDE [Suspect]
     Indication: ANAESTHESIA
     Dosage: 2 MG, 1 IN 1 TOTAL,
     Dates: start: 19990210, end: 19990210
  3. NITROUS OXIDE W/ OXYGEN [Suspect]
     Indication: DRUG USE FOR UNKNOWN INDICATION
     Dates: start: 19990210, end: 19990210
  4. SEVOFLURANE [Suspect]
     Indication: DRUG USE FOR UNKNOWN INDICATION
     Dates: start: 19990210, end: 19990210
  5. SUBLIMAZE (FENTANYL) [Suspect]
     Indication: ANAESTHESIA
     Dosage: 50 MCG, 1 IN 1 TOTAL,
     Dates: start: 19990210, end: 19990210
  6. TEMAZEPAM [Suspect]
     Indication: ANAESTHESIA
     Dosage: 10 MG, 1 IN 1 TOTAL,
     Dates: start: 19990210, end: 19990210

REACTIONS (4)
  - CARDIAC ARREST [None]
  - HEART RATE INCREASED [None]
  - PCO2 DECREASED [None]
  - PROCEDURAL COMPLICATION [None]
